FAERS Safety Report 4556513-5 (Version None)
Quarter: 2005Q1

REPORT INFORMATION
  Report Type: 
  Country: None (occurrence: None)
  Receive Date: 20050120
  Receipt Date: 20041215
  Transmission Date: 20050727
  Serious: Yes (Hospitalization)
  Sender: FDA-Public Use
  Company Number: 200414732FR

PATIENT
  Age: 67 Year
  Sex: Female

DRUGS (5)
  1. ARAVA [Suspect]
     Indication: RHEUMATOID ARTHRITIS
     Route: 048
     Dates: start: 20040215, end: 20040830
  2. CORTANCYL [Suspect]
     Indication: RHEUMATOID ARTHRITIS
     Route: 048
     Dates: start: 20040215
  3. NEXIUM [Concomitant]
     Route: 048
  4. OROCAL [Concomitant]
     Route: 048
  5. ACTONEL [Concomitant]
     Route: 048

REACTIONS (7)
  - AFFECT LABILITY [None]
  - AMAUROSIS [None]
  - CEREBRAL HAEMATOMA [None]
  - HAEMORRHAGIC STROKE [None]
  - HEMIANOPIA HOMONYMOUS [None]
  - HYPERTENSION [None]
  - SPEECH DISORDER [None]
